FAERS Safety Report 6598064-2 (Version None)
Quarter: 2010Q1

REPORT INFORMATION
  Report Type: 
  Country: None (occurrence: None)
  Receive Date: 20100216
  Receipt Date: 20100129
  Transmission Date: 20100710
  Serious: Yes (Hospitalization, Other)
  Sender: FDA-Public Use
  Company Number: AUR-APL-2009-00631

PATIENT
  Age: 57 Year
  Sex: Male
  Weight: 98 kg

DRUGS (6)
  1. SIMVASTATIN [Suspect]
     Indication: HYPERCHOLESTEROLAEMIA
     Dosage: 40 MG, DAILY, ORAL
     Route: 048
     Dates: start: 20071001, end: 20090104
  2. ALLOPURINOL [Concomitant]
  3. AMLODIPINE [Concomitant]
  4. ASPIRIN [Concomitant]
  5. INSULIN ASPART [Concomitant]
  6. INSULIN GLARGINE [Concomitant]

REACTIONS (3)
  - BLOOD POTASSIUM INCREASED [None]
  - RENAL FAILURE [None]
  - RHABDOMYOLYSIS [None]
